FAERS Safety Report 6779535-2 (Version None)
Quarter: 2010Q2

REPORT INFORMATION
  Report Type: 
  Country: None (occurrence: None)
  Receive Date: 20100618
  Receipt Date: 20100608
  Transmission Date: 20101027
  Serious: Yes (Hospitalization)
  Sender: FDA-Public Use
  Company Number: SE-JNJFOC-20100603227

PATIENT
  Sex: Male
  Weight: 96.5 kg

DRUGS (8)
  1. REMICADE [Suspect]
     Indication: CROHN'S DISEASE
     Route: 042
  2. REMICADE [Suspect]
     Route: 042
  3. REMICADE [Suspect]
     Route: 042
  4. REMICADE [Suspect]
     Route: 042
  5. ASACOL [Concomitant]
     Indication: CROHN'S DISEASE
  6. FOLACIN [Concomitant]
  7. VITAMIN B [Concomitant]
  8. MAGNESIUM [Concomitant]

REACTIONS (2)
  - ANAL ABSCESS [None]
  - COLITIS ULCERATIVE [None]
